FAERS Safety Report 6184403-3 (Version None)
Quarter: 2009Q2

REPORT INFORMATION
  Report Type: 
  Country: None (occurrence: None)
  Receive Date: 20090508
  Receipt Date: 20090427
  Transmission Date: 20091009
  Serious: Yes (Other)
  Sender: FDA-Public Use
  Company Number: B0570932A

PATIENT
  Age: 55 Year
  Sex: Male

DRUGS (6)
  1. ROSIGLITAZONE [Suspect]
     Indication: TYPE 2 DIABETES MELLITUS
     Dosage: 4MG PER DAY
     Route: 048
  2. REPAGLINIDE [Concomitant]
     Dosage: 3MG THREE TIMES PER DAY
  3. ACARBOSE [Concomitant]
     Dosage: 50MG THREE TIMES PER DAY
  4. DIFORMIN [Concomitant]
     Dosage: 500MG THREE TIMES PER DAY
  5. NIFEDIPINE [Concomitant]
     Dosage: 30MG FOUR TIMES PER DAY
  6. FOSINOPRIL SODIUM [Concomitant]
     Dosage: 10MG PER DAY

REACTIONS (5)
  - EXCORIATION [None]
  - KERATOLYSIS EXFOLIATIVA ACQUIRED [None]
  - MULTIPLE SCLEROSIS [None]
  - PAIN IN EXTREMITY [None]
  - WOUND DEHISCENCE [None]
